FAERS Safety Report 15676188 (Version 1)
Quarter: 2018Q4

REPORT INFORMATION
  Report Type: Other
  Country: None (occurrence: US)
  Receive Date: 20181127
  Receipt Date: 20181127
  Transmission Date: 20190205
  Serious: Yes (Disabling, Congenital Anomaly, Other)
  Sender: FDA-Public Use
  Company Number: US-MEDAC PHARMA, INC.-2059304

PATIENT
  Sex: Male
  Weight: 1.95 kg

DRUGS (3)
  1. MISOPROSTOL. [Suspect]
     Active Substance: MISOPROSTOL
     Route: 064
  2. MIFEPRISTONE [Concomitant]
     Active Substance: MIFEPRISTONE
     Route: 064
  3. METHOTREXATE. [Suspect]
     Active Substance: METHOTREXATE
     Route: 064

REACTIONS (13)
  - Congenital bowing of long bones [Unknown]
  - Skull malformation [Unknown]
  - Limb malformation [Unknown]
  - Maternal exposure during pregnancy [Not Recovered/Not Resolved]
  - Polydactyly [Unknown]
  - Fallot^s tetralogy [Unknown]
  - Spine malformation [Unknown]
  - Craniofacial deformity [Unknown]
  - Multiple cardiac defects [Unknown]
  - Cleft lip and palate [Unknown]
  - Foetal exposure during pregnancy [Unknown]
  - Genitalia external ambiguous [Unknown]
  - Foetal growth restriction [Unknown]
